FAERS Safety Report 5067090-7 (Version None)
Quarter: 2006Q3

REPORT INFORMATION
  Report Type: 
  Country: None (occurrence: None)
  Receive Date: 20060727
  Receipt Date: 20060714
  Transmission Date: 20061208
  Serious: Yes (Disabling)
  Sender: FDA-Public Use
  Company Number: 2006088179

PATIENT
  Age: 62 Year
  Sex: Male

DRUGS (4)
  1. ZELDOX                        (ZIPRASIDONE) [Suspect]
     Indication: PSYCHOTIC DISORDER
     Dosage: 80 MG (1 D), ORAL
     Route: 048
     Dates: start: 20060512, end: 20060516
  2. ZYPREXA [Suspect]
     Indication: PSYCHOTIC DISORDER
     Dosage: 10 MG (1 D), ORAL
     Route: 048
     Dates: start: 20060505, end: 20060511
  3. VALPROATE SODIUM [Concomitant]
  4. TAVOR (LORAZEPAM) [Concomitant]

REACTIONS (6)
  - BEDRIDDEN [None]
  - COGWHEEL RIGIDITY [None]
  - DEPRESSED LEVEL OF CONSCIOUSNESS [None]
  - GENERAL PHYSICAL HEALTH DETERIORATION [None]
  - PYREXIA [None]
  - STEREOTYPY [None]
